FAERS Safety Report 9251305 (Version 1)
Quarter: 2013Q2

REPORT INFORMATION
  Report Type: Spontaneous
  Country: US (occurrence: US)
  Receive Date: 20130424
  Receipt Date: 20130424
  Transmission Date: 20140414
  Serious: Yes (Other)
  Sender: FDA-Public Use
  Company Number: US-PFIZER INC-2013122771

PATIENT
  Age: 49 Year
  Sex: Female

DRUGS (7)
  1. EFFEXOR XR [Suspect]
     Dosage: 37.5 MG, 1X/DAY
     Route: 048
  2. NORVASC [Suspect]
     Dosage: 5 MG, 1X/DAY
     Route: 048
  3. 5 FLUOROURACIL [Concomitant]
     Dosage: UNK
  4. NORCO [Concomitant]
     Dosage: 7.5/325, UNK
  5. ATIVAN [Concomitant]
     Dosage: UNK
  6. ADVIL [Concomitant]
     Dosage: UNK
  7. COMPAZINE [Concomitant]
     Dosage: UNK

REACTIONS (1)
  - Neoplasm malignant [Unknown]
